FAERS Safety Report 9162420 (Version 1)
Quarter: 2013Q1

REPORT INFORMATION
  Report Type: Spontaneous
  Country: DK (occurrence: None)
  Receive Date: 20130225
  Receipt Date: 20130225
  Transmission Date: 20140127
  Serious: Yes (Other)
  Sender: FDA-Public Use
  Company Number: 2013MA001257

PATIENT
  Sex: Female

DRUGS (3)
  1. RAMIPRIL [Suspect]
  2. CON MEDS [Concomitant]
  3. PREV MEDS [Concomitant]

REACTIONS (3)
  - Diarrhoea [None]
  - Medication error [None]
  - Product quality issue [None]
